FAERS Safety Report 5912839-1 (Version None)
Quarter: 2008Q4

REPORT INFORMATION
  Report Type: 
  Country: None (occurrence: None)
  Receive Date: 20081008
  Receipt Date: 20080923
  Transmission Date: 20090506
  Serious: Yes (Hospitalization)
  Sender: FDA-Public Use
  Company Number: DK-GENENTECH-269067

PATIENT

DRUGS (2)
  1. BEVACIZUMAB [Suspect]
     Indication: COLORECTAL CANCER METASTATIC
     Dosage: UNK
     Dates: start: 20080214
  2. ERLOTINIB [Suspect]
     Indication: COLORECTAL CANCER METASTATIC
     Dosage: UNK
     Dates: start: 20080214

REACTIONS (4)
  - APHASIA [None]
  - HYPERTENSION [None]
  - THYROID DISORDER [None]
  - VISUAL IMPAIRMENT [None]
